FAERS Safety Report 8500583-6 (Version None)
Quarter: 2012Q3

REPORT INFORMATION
  Report Type: 
  Country: None (occurrence: None)
  Receive Date: 20120710
  Receipt Date: 20120627
  Transmission Date: 20120928
  Serious: Yes (Hospitalization, Other)
  Sender: FDA-Public Use
  Company Number: US-ROCHE-1082641

PATIENT
  Sex: Male

DRUGS (10)
  1. ZYRTEC [Concomitant]
     Indication: HYPERSENSITIVITY
  2. ADVAIR DISKUS 100/50 [Concomitant]
     Indication: HYPERSENSITIVITY
     Route: 055
     Dates: start: 20111101
  3. XOLAIR [Suspect]
     Indication: ASTHMA
     Route: 058
     Dates: start: 20111201, end: 20120217
  4. PREDNISONE [Concomitant]
     Indication: URTICARIA
     Route: 048
  5. XOLAIR [Suspect]
     Indication: URTICARIA
  6. ZYRTEC [Concomitant]
     Indication: URTICARIA
     Route: 048
  7. PREDNISONE [Concomitant]
     Indication: HYPERSENSITIVITY
  8. HYDROXYZINE [Concomitant]
     Indication: URTICARIA
     Route: 048
  9. PROAIR HFA [Concomitant]
     Indication: HYPERSENSITIVITY
     Route: 055
  10. HYDROXYZINE [Concomitant]
     Indication: HYPERSENSITIVITY

REACTIONS (4)
  - PYREXIA [None]
  - SEPSIS [None]
  - FUNGAL INFECTION [None]
  - ARTHRALGIA [None]
